FAERS Safety Report 9178511 (Version 3)
Quarter: 2013Q2

REPORT INFORMATION
  Report Type: Spontaneous
  Country: US (occurrence: US)
  Receive Date: 20130321
  Receipt Date: 20130530
  Transmission Date: 20140414
  Serious: Yes (Hospitalization)
  Sender: FDA-Public Use
  Company Number: US-GILEAD-2013-0071708

PATIENT
  Sex: Male

DRUGS (1)
  1. LETAIRIS [Suspect]
     Indication: PULMONARY HYPERTENSION
     Dosage: 5 MG, UNK
     Dates: start: 20130207

REACTIONS (4)
  - Gait disturbance [Unknown]
  - Asthenia [Unknown]
  - Face oedema [Unknown]
  - Oedema peripheral [Unknown]
